FAERS Safety Report 4474688-3 (Version None)
Quarter: 2004Q4

REPORT INFORMATION
  Report Type: 
  Country: None (occurrence: None)
  Receive Date: 20041012
  Receipt Date: 20040929
  Transmission Date: 20050328
  Serious: Yes (Hospitalization)
  Sender: FDA-Public Use
  Company Number: 200412762GDS

PATIENT
  Age: 73 Year
  Sex: Female

DRUGS (1)
  1. ASPIRIN [Suspect]
     Indication: MONARTHRITIS
     Dosage: QD, ORAL
     Route: 048

REACTIONS (6)
  - ABDOMINAL ADHESIONS [None]
  - ABDOMINAL PAIN UPPER [None]
  - ABDOMINAL TENDERNESS [None]
  - HAEMATEMESIS [None]
  - PANCREATIC CYST [None]
  - PANCREATIC HAEMORRHAGE [None]
